FAERS Safety Report 7346005-2 (Version None)
Quarter: 2011Q1

REPORT INFORMATION
  Report Type: 
  Country: None (occurrence: None)
  Receive Date: 20110307
  Receipt Date: 20110307
  Transmission Date: 20110831
  Serious: Yes (Hospitalization)
  Sender: FDA-Public Use
  Company Number: None

PATIENT
  Sex: Female
  Weight: 74.4 kg

DRUGS (10)
  1. METHIMAZOLE [Concomitant]
  2. PANOBINOSTAT [Suspect]
     Dosage: 30MG Q M-W-F
     Dates: start: 20110214, end: 20110218
  3. RANITIDINE [Concomitant]
  4. DILTIAZEM [Concomitant]
  5. LORAZEPAM [Concomitant]
  6. VITAMIN D [Concomitant]
  7. MULTI-VITAMIN [Concomitant]
  8. CALCIUM [Concomitant]
  9. ZOFRAN [Concomitant]
  10. LORATADINE [Concomitant]

REACTIONS (4)
  - PALPITATIONS [None]
  - ELECTROCARDIOGRAM ABNORMAL [None]
  - HYPOKALAEMIA [None]
  - CARDIAC DISORDER [None]
